FAERS Safety Report 19242821 (Version 2)
Quarter: 2021Q2

REPORT INFORMATION
  Report Type: Spontaneous
  Country: US (occurrence: US)
  Receive Date: 20210511
  Receipt Date: 20210609
  Transmission Date: 20210717
  Serious: No
  Sender: FDA-Public Use
  Company Number: US-GLAXOSMITHKLINE-US2021AMR100300

PATIENT

DRUGS (1)
  1. BENLYSTA [Suspect]
     Active Substance: BELIMUMAB
     Indication: PSORIATIC ARTHROPATHY
     Dosage: UNK, 200 MG IN 1 ML

REACTIONS (4)
  - Skin laceration [Unknown]
  - Product use in unapproved indication [Unknown]
  - Product complaint [Unknown]
  - Accidental exposure to product [Unknown]
